FAERS Safety Report 10023651 (Version 2)
Quarter: 2014Q2

REPORT INFORMATION
  Report Type: Spontaneous
  Country: US (occurrence: US)
  Receive Date: 20140320
  Receipt Date: 20140417
  Transmission Date: 20141212
  Serious: No
  Sender: FDA-Public Use
  Company Number: US-JNJFOC-20140305669

PATIENT
  Sex: Female
  Weight: 76.66 kg

DRUGS (4)
  1. DURAGESIC [Suspect]
     Indication: PAIN
     Dosage: 100UG/HR 2 PATCHES AND 50UG/HR ONE PATCH
     Route: 062
     Dates: start: 1999
  2. OXYIR [Concomitant]
     Indication: PAIN
     Route: 048
  3. NORTRIPTYLINE [Concomitant]
     Indication: DEPRESSION
     Route: 048
  4. NORTRIPTYLINE [Concomitant]
     Indication: PAIN
     Route: 048

REACTIONS (3)
  - Drug prescribing error [Unknown]
  - Inappropriate schedule of drug administration [Unknown]
  - Drug ineffective [Unknown]
